FAERS Safety Report 15272610 (Version 1)
Quarter: 2018Q3

REPORT INFORMATION
  Report Type: Spontaneous
  Country: NL (occurrence: NL)
  Receive Date: 20180813
  Receipt Date: 20180813
  Transmission Date: 20181010
  Serious: Yes (Hospitalization)
  Sender: FDA-Public Use
  Company Number: NL-TEVA-2018-NL-940116

PATIENT

DRUGS (5)
  1. FLUOROURACIL. [Suspect]
     Active Substance: FLUOROURACIL
     Indication: COLORECTAL CANCER
     Dosage: MOST RECENT DOSE PRIOR TO SAE : 06/JUL/2016
     Route: 065
     Dates: start: 20160526
  2. LEUCOVORIN. [Suspect]
     Active Substance: LEUCOVORIN
     Indication: COLORECTAL CANCER
     Dosage: MOST RECENT DOSE PRIOR TO SAE : 06/JUL/2016
     Route: 065
     Dates: start: 20160526
  3. OXALIPLATIN. [Suspect]
     Active Substance: OXALIPLATIN
     Indication: COLORECTAL CANCER
     Dosage: MOST RECENT DOSE PRIOR TO SAE : 06/JUL/2016
     Route: 065
     Dates: start: 20160526
  4. IRINOTECAN [Suspect]
     Active Substance: IRINOTECAN
     Indication: COLORECTAL CANCER
     Dosage: MOST RECENT DOSE PRIOR TO SAE : 06/JUL/2016
     Route: 065
     Dates: start: 20160526
  5. AVASTIN [Suspect]
     Active Substance: BEVACIZUMAB
     Indication: COLORECTAL CANCER
     Dosage: MOST RECENT DOSE PRIOR TO SAE : 06/JUL/2016
     Route: 065
     Dates: start: 20160526

REACTIONS (1)
  - Skin infection [Recovered/Resolved]

NARRATIVE: CASE EVENT DATE: 20160706
